FAERS Safety Report 6220140-4 (Version None)
Quarter: 2009Q2

REPORT INFORMATION
  Report Type: 
  Country: None (occurrence: None)
  Receive Date: 20090609
  Receipt Date: 20090529
  Transmission Date: 20091009
  Serious: Yes (Other)
  Sender: FDA-Public Use
  Company Number: US-JNJCH-2009014040

PATIENT
  Age: 61 Year
  Weight: 88.9 kg

DRUGS (1)
  1. LISTERINE WHITENING VIBRANT WHITE PRE-BRUSH RINSE [Suspect]
     Indication: DENTAL CARE
     Dosage: TEXT:1/2 CAP 1 X A DAY
     Route: 048

REACTIONS (3)
  - MOUTH INJURY [None]
  - PAIN [None]
  - SWELLING [None]
